FAERS Safety Report 12214438 (Version 1)
Quarter: 2016Q1

REPORT INFORMATION
  Report Type: Report from Study
  Country: CO (occurrence: CO)
  Receive Date: 20160328
  Receipt Date: 20160328
  Transmission Date: 20160526
  Serious: Yes (Death)
  Sender: FDA-Public Use
  Company Number: CO-JNJFOC-20160323359

PATIENT
  Age: 36 Year
  Sex: Male
  Weight: 85 kg

DRUGS (1)
  1. RISPERDAL CONSTA [Suspect]
     Active Substance: RISPERIDONE
     Indication: BIPOLAR DISORDER
     Route: 030
     Dates: start: 20151104, end: 20160316

REACTIONS (5)
  - Dissociation [Fatal]
  - Depression [Fatal]
  - Psychotic disorder [Fatal]
  - Fear of open spaces [Fatal]
  - Completed suicide [Fatal]

NARRATIVE: CASE EVENT DATE: 20160316
